FAERS Safety Report 6114846-5 (Version None)
Quarter: 2009Q1

REPORT INFORMATION
  Report Type: 
  Country: None (occurrence: None)
  Receive Date: 20090313
  Receipt Date: 20090306
  Transmission Date: 20090719
  Serious: Yes (Hospitalization)
  Sender: FDA-Public Use
  Company Number: US-GILEAD-2009-0020747

PATIENT
  Age: 40 Year
  Sex: Male

DRUGS (1)
  1. ATRIPLA [Suspect]
     Indication: HIV INFECTION
     Dates: start: 20070101

REACTIONS (3)
  - FURUNCLE [None]
  - RENAL FAILURE [None]
  - STAPHYLOCOCCAL INFECTION [None]
